FAERS Safety Report 18132299 (Version 1)
Quarter: 2020Q3

REPORT INFORMATION
  Report Type: Spontaneous
  Country: TW (occurrence: TW)
  Receive Date: 20200811
  Receipt Date: 20200811
  Transmission Date: 20201103
  Serious: Yes (Other)
  Sender: FDA-Public Use
  Company Number: TW-SUN PHARMACEUTICAL INDUSTRIES LTD-2020R1-256183

PATIENT
  Age: 71 Year
  Sex: Male

DRUGS (4)
  1. NAVELBINE [Suspect]
     Active Substance: VINORELBINE TARTRATE
     Indication: LUNG SQUAMOUS CELL CARCINOMA STAGE I
     Dosage: FOUR COURSES
     Route: 065
     Dates: start: 20180105, end: 20180330
  2. CARBOPLATIN. [Suspect]
     Active Substance: CARBOPLATIN
     Indication: LUNG SQUAMOUS CELL CARCINOMA STAGE I
     Dosage: FOUR COURSES
     Route: 065
     Dates: start: 20180105, end: 20180330
  3. CARBOPLATIN. [Suspect]
     Active Substance: CARBOPLATIN
     Dosage: UNK
     Route: 065
     Dates: start: 20180622, end: 20180720
  4. ETOPOSIDE. [Suspect]
     Active Substance: ETOPOSIDE
     Indication: LUNG SQUAMOUS CELL CARCINOMA STAGE I
     Dosage: UNK
     Route: 065
     Dates: start: 20180622, end: 20180720

REACTIONS (1)
  - Neoplasm progression [Not Recovered/Not Resolved]
